FAERS Safety Report 12415052 (Version 3)
Quarter: 2016Q2

REPORT INFORMATION
  Report Type: Report from Study
  Country: US (occurrence: US)
  Receive Date: 20160530
  Receipt Date: 20160603
  Transmission Date: 20160815
  Serious: Yes (Other)
  Sender: FDA-Public Use
  Company Number: US-AMGEN-USASL2016067732

PATIENT
  Age: 65 Year
  Sex: Female

DRUGS (1)
  1. ENBREL [Suspect]
     Active Substance: ETANERCEPT
     Indication: RHEUMATOID ARTHRITIS
     Dosage: 50 MG, UNK
     Route: 065
     Dates: start: 20000601

REACTIONS (9)
  - Spinal laminectomy [Unknown]
  - Oral surgery [Unknown]
  - Lumbar spinal stenosis [Unknown]
  - Ostectomy [Unknown]
  - Septic arthritis staphylococcal [Recovered/Resolved]
  - Surgery [Unknown]
  - Spinal fusion surgery [Unknown]
  - Joint swelling [Unknown]
  - Mobility decreased [Not Recovered/Not Resolved]

NARRATIVE: CASE EVENT DATE: 201301
